FAERS Safety Report 8500072-9 (Version None)
Quarter: 2012Q3

REPORT INFORMATION
  Report Type: 
  Country: None (occurrence: None)
  Receive Date: 20120710
  Receipt Date: 20120703
  Transmission Date: 20120928
  Serious: Yes (Hospitalization)
  Sender: FDA-Public Use
  Company Number: US-BAYER-2012-067468

PATIENT
  Age: 37 Year
  Sex: Female
  Weight: 75 kg

DRUGS (7)
  1. KLOR-CON [Concomitant]
     Dosage: 10 MEQ, EXTENDED RELEASE, UNK
  2. VITAMIN B12 [Concomitant]
     Indication: WEIGHT DECREASED
     Dosage: UNK
  3. CHORIONIC GONADOTROPIN [Concomitant]
     Indication: WEIGHT DECREASED
     Dosage: UNK
  4. PHENTERMINE HYDROCHLORIDE [Concomitant]
     Dosage: 15 MG, UNK
  5. YAZ [Suspect]
     Dosage: UNK
  6. ASCORBIC ACID [Concomitant]
     Dosage: UNK
  7. MAGNESIUM SULFATE [Concomitant]
     Dosage: UNK

REACTIONS (1)
  - CEREBROVASCULAR ACCIDENT [None]
